FAERS Safety Report 5806817-0 (Version None)
Quarter: 2008Q3

REPORT INFORMATION
  Report Type: 
  Country: None (occurrence: None)
  Receive Date: 20080711
  Receipt Date: 20080628
  Transmission Date: 20090109
  Serious: Yes (Other)
  Sender: FDA-Public Use
  Company Number: US-BAYER-200812653BCC

PATIENT
  Sex: Male

DRUGS (2)
  1. ALEVE [Suspect]
     Indication: BACK PAIN
  2. BAYER ASPIRIN (TIME-RELEASE ASPIRIN) [Suspect]
     Indication: BACK PAIN

REACTIONS (1)
  - DIABETES MELLITUS [None]
